FAERS Safety Report 17033014 (Version 1)
Quarter: 2019Q4

REPORT INFORMATION
  Report Type: Spontaneous
  Country: US (occurrence: US)
  Receive Date: 20191014
  Receipt Date: 20191014
  Transmission Date: 20200122
  Serious: Yes (Hospitalization)
  Sender: FDA-Public Use
  Company Number: None

PATIENT
  Age: 28 Year
  Sex: Female

DRUGS (1)
  1. GAMMAGARD [Suspect]
     Active Substance: HUMAN IMMUNOGLOBULIN G
     Indication: EPILEPSY
     Route: 042
     Dates: start: 20181026

REACTIONS (6)
  - Headache [None]
  - Dysarthria [None]
  - Gait disturbance [None]
  - Nausea [None]
  - Meningitis [None]
  - Sepsis [None]

NARRATIVE: CASE EVENT DATE: 20191013
